FAERS Safety Report 15497164 (Version 2)
Quarter: 2018Q4

REPORT INFORMATION
  Report Type: Spontaneous
  Country: US (occurrence: US)
  Receive Date: 20181015
  Receipt Date: 20181029
  Transmission Date: 20190205
  Serious: No
  Sender: FDA-Public Use
  Company Number: US-CELGENEUS-USA-20181003279

PATIENT
  Age: 48 Year
  Sex: Female

DRUGS (4)
  1. ROMIDEPSIN (PFIZER) [Suspect]
     Active Substance: ROMIDEPSIN
     Dosage: 500 MILLIGRAM
     Route: 041
     Dates: start: 2018
  2. ROMIDEPSIN (PFIZER) [Suspect]
     Active Substance: ROMIDEPSIN
     Dosage: WAS 38 NOW 27, EVERY THURSDAY FOR 3 WEEKS AND THEN WEEK OFF
     Route: 041
     Dates: start: 20180614
  3. MORPHIN [Concomitant]
     Active Substance: MORPHINE
     Indication: PAIN
     Route: 041
  4. ROMIDEPSIN (PFIZER) [Suspect]
     Active Substance: ROMIDEPSIN
     Indication: MYCOSIS FUNGOIDES
     Route: 041
     Dates: start: 20180607

REACTIONS (7)
  - Abdominal pain [Not Recovered/Not Resolved]
  - Nausea [Not Recovered/Not Resolved]
  - Mycosis fungoides [Not Recovered/Not Resolved]
  - Dysgeusia [Not Recovered/Not Resolved]
  - Abdominal pain upper [Not Recovered/Not Resolved]
  - Vomiting [Not Recovered/Not Resolved]
  - Chest discomfort [Not Recovered/Not Resolved]

NARRATIVE: CASE EVENT DATE: 201806
